FAERS Safety Report 16326587 (Version 2)
Quarter: 2020Q3

REPORT INFORMATION
  Report Type: Spontaneous
  Country: US (occurrence: US)
  Receive Date: 20190517
  Receipt Date: 20200831
  Transmission Date: 20201102
  Serious: Yes (Other)
  Sender: FDA-Public Use
  Company Number: US-GILEAD-2019-0407772

PATIENT
  Age: 57 Year
  Sex: Male
  Weight: 107.48 kg

DRUGS (38)
  1. INTELENCE [Concomitant]
     Active Substance: ETRAVIRINE
  2. ASPIRIN (E.C.) [Concomitant]
     Active Substance: ASPIRIN
  3. TUSSIONEX PENNKINETIC [Concomitant]
     Active Substance: CHLORPHENIRAMINE\HYDROCODONE
  4. VASCEPA [Concomitant]
     Active Substance: ICOSAPENT ETHYL
  5. LANTUS XR [Concomitant]
     Active Substance: INSULIN GLARGINE
  6. PREGABALIN. [Concomitant]
     Active Substance: PREGABALIN
  7. ISENTRESS [Concomitant]
     Active Substance: RALTEGRAVIR POTASSIUM
  8. TRICOR [Concomitant]
     Active Substance: FENOFIBRATE
  9. DIFLUCAN [Concomitant]
     Active Substance: FLUCONAZOLE
  10. NEURONTIN [Concomitant]
     Active Substance: GABAPENTIN
  11. VIREAD [Suspect]
     Active Substance: TENOFOVIR DISOPROXIL FUMARATE
     Indication: HIV INFECTION
     Dosage: UNK
     Route: 048
     Dates: start: 20090421, end: 201302
  12. ATORVASTATIN [Concomitant]
     Active Substance: ATORVASTATIN
  13. COUMADIN [Concomitant]
     Active Substance: WARFARIN SODIUM
  14. ROBAXIN [Concomitant]
     Active Substance: METHOCARBAMOL
  15. XANAX [Concomitant]
     Active Substance: ALPRAZOLAM
  16. REMERON [Concomitant]
     Active Substance: MIRTAZAPINE
  17. MULTIVITAMIN (16) [Concomitant]
     Active Substance: VITAMINS
  18. ATRIPLA [Suspect]
     Active Substance: EFAVIRENZ\EMTRICITABINE\TENOFOVIR DISOPROXIL FUMARATE
     Indication: HIV INFECTION
     Dosage: UNK
     Route: 048
     Dates: start: 2009, end: 2013
  19. NORVASC [Concomitant]
     Active Substance: AMLODIPINE BESYLATE
  20. ASCORBIC ACID. [Concomitant]
     Active Substance: ASCORBIC ACID
  21. CATAPRES [Concomitant]
     Active Substance: CLONIDINE HYDROCHLORIDE
  22. DOXYCYCLINE. [Concomitant]
     Active Substance: DOXYCYCLINE
  23. LISINOPRIL. [Concomitant]
     Active Substance: LISINOPRIL
  24. VITAMIN B [Concomitant]
     Active Substance: VITAMIN B
  25. COMBIVIR [Concomitant]
     Active Substance: LAMIVUDINE\ZIDOVUDINE
  26. BASAGLAR [Concomitant]
     Active Substance: INSULIN GLARGINE
  27. PLAVIX [Concomitant]
     Active Substance: CLOPIDOGREL BISULFATE
  28. ZETIA [Concomitant]
     Active Substance: EZETIMIBE
  29. GLIPIZIDE. [Concomitant]
     Active Substance: GLIPIZIDE
  30. HUMALOG [Concomitant]
     Active Substance: INSULIN LISPRO
  31. FLOMAX [Concomitant]
     Active Substance: TAMSULOSIN HYDROCHLORIDE
  32. SELZENTRY [Concomitant]
     Active Substance: MARAVIROC
  33. LASIX [Concomitant]
     Active Substance: FUROSEMIDE
  34. COZAAR [Concomitant]
     Active Substance: LOSARTAN POTASSIUM
  35. LOVENOX HP [Concomitant]
     Active Substance: ENOXAPARIN SODIUM
  36. LOVAZA [Concomitant]
     Active Substance: OMEGA-3-ACID ETHYL ESTERS
  37. PRAVASTATIN. [Concomitant]
     Active Substance: PRAVASTATIN
  38. NITROSTAT [Concomitant]
     Active Substance: NITROGLYCERIN

REACTIONS (22)
  - Foot fracture [Unknown]
  - Anhedonia [Not Recovered/Not Resolved]
  - Arthralgia [Unknown]
  - Fracture [Not Recovered/Not Resolved]
  - Chronic kidney disease [Not Recovered/Not Resolved]
  - Emotional distress [Not Recovered/Not Resolved]
  - Economic problem [Not Recovered/Not Resolved]
  - Anxiety [Not Recovered/Not Resolved]
  - Pain [Not Recovered/Not Resolved]
  - Pain in extremity [Unknown]
  - Stress fracture [Unknown]
  - Depression [Not Recovered/Not Resolved]
  - Osteoporosis [Not Recovered/Not Resolved]
  - Osteopenia [Not Recovered/Not Resolved]
  - Back pain [Unknown]
  - Renal pain [Unknown]
  - Metabolic disorder [Unknown]
  - Tibia fracture [Unknown]
  - Physical disability [Not Recovered/Not Resolved]
  - Swelling [Not Recovered/Not Resolved]
  - Bone density decreased [Unknown]
  - Gait disturbance [Not Recovered/Not Resolved]

NARRATIVE: CASE EVENT DATE: 2004
